FAERS Safety Report 9006501 (Version 1)
Quarter: 2013Q1

REPORT INFORMATION
  Report Type: Spontaneous
  Country: US (occurrence: None)
  Receive Date: 20130109
  Receipt Date: 20130109
  Transmission Date: 20140127
  Serious: No
  Sender: FDA-Public Use
  Company Number: DL2013-0020

PATIENT
  Age: 23 Year
  Sex: Female

DRUGS (3)
  1. MIFEPRISTONE [Suspect]
     Indication: ABORTION INDUCED
     Route: 048
     Dates: start: 20121107
  2. MISOPROSTOL [Suspect]
     Route: 002
     Dates: start: 20121108
  3. DOXYCYCLINE [Concomitant]

REACTIONS (4)
  - Anaemia [None]
  - Abortion incomplete [None]
  - Haemorrhage [None]
  - Syncope [None]
